FAERS Safety Report 25627646 (Version 1)
Quarter: 2025Q3

REPORT INFORMATION
  Report Type: Other
  Country: EU (occurrence: EU)
  Receive Date: 20250731
  Receipt Date: 20250731
  Transmission Date: 20251020
  Serious: Yes (Hospitalization)
  Sender: MACLEODS
  Company Number: EU-DCGMA-25205578

PATIENT

DRUGS (2)
  1. LEVOFLOXACIN [Suspect]
     Active Substance: LEVOFLOXACIN
     Indication: Pneumonia
     Route: 048
  2. PREDNISOLONE [Concomitant]
     Active Substance: PREDNISOLONE
     Indication: Chronic obstructive pulmonary disease
     Route: 048

REACTIONS (4)
  - Tenosynovitis [Unknown]
  - Pain in extremity [Unknown]
  - Pain in extremity [Unknown]
  - Tendon rupture [Unknown]

NARRATIVE: CASE EVENT DATE: 20250630
